FAERS Safety Report 9110730 (Version 1)
Quarter: 2013Q1

REPORT INFORMATION
  Report Type: Spontaneous
  Country: US (occurrence: US)
  Receive Date: 20130219
  Receipt Date: 20130219
  Transmission Date: 20140127
  Serious: No
  Sender: FDA-Public Use
  Company Number: US-BRISTOL-MYERS SQUIBB COMPANY-17076092

PATIENT
  Age: 67 Year
  Sex: Female
  Weight: 75.73 kg

DRUGS (6)
  1. ORENCIA [Suspect]
     Indication: RHEUMATOID ARTHRITIS
     Dosage: LAST INF: 24OCT12
     Route: 042
     Dates: start: 201202
  2. ATENOLOL [Concomitant]
  3. NORVASC [Concomitant]
  4. CLONIDINE [Concomitant]
  5. AVAPRO [Concomitant]
  6. LIPITOR [Concomitant]

REACTIONS (2)
  - Hypertension [Not Recovered/Not Resolved]
  - Local swelling [Not Recovered/Not Resolved]
